FAERS Safety Report 5670326-2 (Version None)
Quarter: 2008Q2

REPORT INFORMATION
  Report Type: 
  Country: None (occurrence: None)
  Receive Date: 20080303
  Receipt Date: 20070709
  Transmission Date: 20081010
  Serious: Yes (Other)
  Sender: FDA-Public Use
  Company Number: MK-6035707

PATIENT
  Age: 16 Year
  Sex: Male

DRUGS (3)
  1. AMNESTEEM [Suspect]
     Indication: DRUG USE FOR UNKNOWN INDICATION
  2. AMNESTEEM [Suspect]
  3. CLARAVIS [Concomitant]

REACTIONS (2)
  - INFLAMMATION [None]
  - PANCREATITIS [None]
